FAERS Safety Report 9284072 (Version 2)
Quarter: 2013Q2

REPORT INFORMATION
  Report Type: Spontaneous
  Country: FR (occurrence: FR)
  Receive Date: 20130510
  Receipt Date: 20130514
  Transmission Date: 20140414
  Serious: Yes (Other)
  Sender: FDA-Public Use
  Company Number: FR-PFIZER INC-2013135225

PATIENT
  Age: 82 Year
  Sex: Male

DRUGS (5)
  1. TAHOR [Suspect]
     Dosage: UNK
     Route: 048
     Dates: start: 2010, end: 20130404
  2. AMIODARONE HCL [Suspect]
     Dosage: UNK
     Route: 048
     Dates: start: 20130312, end: 20130404
  3. XARELTO [Concomitant]
     Dosage: UNK
     Route: 048
     Dates: start: 201301
  4. INEXIUM [Concomitant]
     Dosage: UNK
  5. LEXOMIL [Concomitant]
     Dosage: UNK

REACTIONS (1)
  - Hepatocellular injury [Recovering/Resolving]
